FAERS Safety Report 9929937 (Version 2)
Quarter: 2014Q1

REPORT INFORMATION
  Report Type: Spontaneous
  Country: FR (occurrence: FR)
  Receive Date: 20140227
  Receipt Date: 20140327
  Transmission Date: 20141002
  Serious: Yes (Other)
  Sender: FDA-Public Use
  Company Number: FR-BAXTER-2014BAX008687

PATIENT
  Age: 12 Year
  Sex: Male

DRUGS (1)
  1. GAMMAGARD 50 MG/ML, POUDRE ET SOLVANT POUR SOLUTION POUR PERFUSION [Suspect]
     Indication: B-LYMPHOCYTE COUNT DECREASED
     Route: 042

REACTIONS (1)
  - Drug ineffective [Not Recovered/Not Resolved]
